FAERS Safety Report 14702144 (Version 1)
Quarter: 2018Q2

REPORT INFORMATION
  Report Type: Spontaneous
  Country: US (occurrence: US)
  Receive Date: 20180401
  Receipt Date: 20180401
  Transmission Date: 20180711
  Serious: No
  Sender: FDA-Public Use
  Company Number: US-TEVA-2018-US-876989

PATIENT
  Sex: Female

DRUGS (1)
  1. AUSTEDO [Suspect]
     Active Substance: DEUTETRABENAZINE
     Indication: HUNTINGTON^S DISEASE
     Dosage: 54 MILLIGRAM DAILY; THREE 9MG TABLETS TWICE DAILY
     Dates: start: 20171217

REACTIONS (5)
  - Chorea [Unknown]
  - Balance disorder [Unknown]
  - Drug ineffective [Unknown]
  - Abdominal discomfort [Unknown]
  - Weight decreased [Unknown]
